FAERS Safety Report 7739569-8 (Version None)
Quarter: 2011Q3

REPORT INFORMATION
  Report Type: 
  Country: None (occurrence: None)
  Receive Date: 20110909
  Receipt Date: 20110829
  Transmission Date: 20111222
  Serious: Yes (Hospitalization)
  Sender: FDA-Public Use
  Company Number: DE-ELI_LILLY_AND_COMPANY-DE201008005742

PATIENT
  Sex: Male
  Weight: 72 kg

DRUGS (9)
  1. CALCILAC KT [Concomitant]
     Indication: HYPOCALCAEMIA
     Dates: start: 20100429
  2. VITAMIN B-12 [Concomitant]
     Indication: PROPHYLAXIS
     Dates: start: 20100416
  3. PEMETREXED [Suspect]
     Indication: NON-SMALL CELL LUNG CANCER
     Dosage: EVERY 21 DAYS
     Route: 042
     Dates: start: 20100424
  4. CISPLATIN [Suspect]
     Indication: NON-SMALL CELL LUNG CANCER
     Dosage: EVERY 21 DAYS
     Route: 042
     Dates: start: 20100424
  5. BEVACIZUMAB [Suspect]
     Indication: NON-SMALL CELL LUNG CANCER
     Dosage: EVERY 21 DAYS
     Route: 042
     Dates: start: 20100424
  6. DEXAMETHASONE [Concomitant]
     Indication: PROPHYLAXIS
     Dates: start: 20100423
  7. KALINOR [Concomitant]
     Indication: HYPOKALAEMIA
     Dates: start: 20100727
  8. FOLIC ACID [Concomitant]
     Indication: PROPHYLAXIS
     Dates: start: 20100417
  9. ZOPICLONE [Concomitant]
     Indication: INSOMNIA
     Dates: start: 20100614

REACTIONS (2)
  - VERTIGO [None]
  - NAUSEA [None]
